FAERS Safety Report 10073139 (Version 2)
Quarter: 2014Q2

REPORT INFORMATION
  Report Type: Spontaneous
  Country: JP (occurrence: JP)
  Receive Date: 20140411
  Receipt Date: 20140612
  Transmission Date: 20141212
  Serious: Yes (Life-Threatening)
  Sender: FDA-Public Use
  Company Number: JP-JNJFOC-20140405258

PATIENT
  Age: 71 Year
  Sex: Female
  Weight: 47 kg

DRUGS (7)
  1. REMICADE [Suspect]
     Indication: RHEUMATOID ARTHRITIS
     Route: 042
     Dates: start: 20140206, end: 20140206
  2. REMICADE [Suspect]
     Indication: RHEUMATOID ARTHRITIS
     Route: 042
     Dates: start: 20140123, end: 20140123
  3. LIMETHASON [Concomitant]
     Route: 051
  4. METHOTREXATE [Concomitant]
     Route: 048
  5. RIMATIL [Concomitant]
     Route: 048
  6. PREDNISOLONE [Concomitant]
     Route: 048
     Dates: start: 20140306
  7. CARERAM [Concomitant]
     Route: 048
     Dates: start: 20140306

REACTIONS (1)
  - Pneumocystis jirovecii pneumonia [Recovered/Resolved]
